FAERS Safety Report 6295272-5 (Version None)
Quarter: 2009Q3

REPORT INFORMATION
  Report Type: 
  Country: None (occurrence: None)
  Receive Date: 20090803
  Receipt Date: 20090723
  Transmission Date: 20100115
  Serious: Yes (Life-Threatening)
  Sender: FDA-Public Use
  Company Number: FR-BAXTER-2009BH011737

PATIENT
  Age: 58 Year
  Sex: Male

DRUGS (4)
  1. ENDOXAN BAXTER [Suspect]
     Indication: LYMPHOMA
     Route: 042
     Dates: start: 20071201, end: 20071201
  2. MABTHERA [Suspect]
     Indication: LYMPHOMA
     Route: 042
     Dates: start: 20071201, end: 20071201
  3. FLUDARA [Suspect]
     Indication: LYMPHOMA
     Route: 042
     Dates: start: 20071201, end: 20071201
  4. FLUDARA [Suspect]
     Route: 042
     Dates: start: 20071201, end: 20071201

REACTIONS (1)
  - PROGRESSIVE MULTIFOCAL LEUKOENCEPHALOPATHY [None]
